FAERS Safety Report 11986944 (Version 1)
Quarter: 2016Q1

REPORT INFORMATION
  Report Type: Spontaneous
  Country: US (occurrence: None)
  Receive Date: 20160201
  Receipt Date: 20160201
  Transmission Date: 20160526
  Serious: Yes (Life-Threatening, Hospitalization)
  Sender: FDA-Public Use
  Company Number: None

PATIENT
  Age: 78 Year
  Sex: Female
  Weight: 78.93 kg

DRUGS (8)
  1. LETROZOLE 2.5 MG SUN PHARMACEUTICALS [Suspect]
     Active Substance: LETROZOLE
     Indication: NEOPLASM RECURRENCE
     Dosage: 30, ONCE DAILY TAKEN BY MOUTH
     Route: 048
     Dates: start: 20160118, end: 20160122
  2. AMLODIPINE [Concomitant]
     Active Substance: AMLODIPINE BESYLATE
  3. ARMOUR THYROID [Concomitant]
     Active Substance: THYROID, PORCINE
  4. VITAMIN C [Concomitant]
     Active Substance: ASCORBIC ACID
  5. XARELTO [Concomitant]
     Active Substance: RIVAROXABAN
  6. VITAMIN D3 [Concomitant]
     Active Substance: CHOLECALCIFEROL
  7. VITAMIN E [Concomitant]
     Active Substance: .ALPHA.-TOCOPHEROL
  8. LETROZOLE 2.5 MG SUN PHARMACEUTICALS [Suspect]
     Active Substance: LETROZOLE
     Indication: PROPHYLAXIS
     Dosage: 30, ONCE DAILY TAKEN BY MOUTH
     Route: 048
     Dates: start: 20160118, end: 20160122

REACTIONS (2)
  - Pulmonary thrombosis [None]
  - Blood pressure increased [None]

NARRATIVE: CASE EVENT DATE: 20160123
